FAERS Safety Report 20776838 (Version 2)
Quarter: 2022Q2

REPORT INFORMATION
  Report Type: Spontaneous
  Country: US (occurrence: US)
  Receive Date: 20220502
  Receipt Date: 20220511
  Transmission Date: 20220721
  Serious: Yes (Other)
  Sender: FDA-Public Use
  Company Number: US-009507513-2204USA008979

PATIENT
  Sex: Male
  Weight: 65.27 kg

DRUGS (23)
  1. KEYTRUDA [Suspect]
     Active Substance: PEMBROLIZUMAB
     Indication: Oesophageal squamous cell carcinoma stage 0
     Dosage: 400 MILLIGRAM, EVERY 6 WEEKS
     Dates: start: 20211118, end: 20220127
  2. KEYTRUDA [Suspect]
     Active Substance: PEMBROLIZUMAB
     Indication: Oesophageal carcinoma
     Dosage: 200 MILLIGRAM, Q3W
     Dates: start: 202202
  3. FLUOROURACIL [Concomitant]
     Active Substance: FLUOROURACIL
     Dosage: UNK
     Dates: start: 20210928, end: 20220127
  4. CISPLATIN [Concomitant]
     Active Substance: CISPLATIN
     Dosage: UNK
     Dates: start: 20210928, end: 20220127
  5. TAMSULOSIN [Concomitant]
     Active Substance: TAMSULOSIN
     Dosage: 1 DOSAGE FORM (0.4 MG), EVERY DAY BEFORE SLEEP
  6. PANTOPRAZOLE [Concomitant]
     Active Substance: PANTOPRAZOLE
     Dosage: 1 TABLET (40 MG) DAILY
     Route: 048
  7. NAPROXEN SODIUM [Concomitant]
     Active Substance: NAPROXEN SODIUM
     Dosage: 1 CAPSULE (220 MG), TWICE A DAY, PER NEED
     Route: 048
  8. SENNA+ [Concomitant]
     Dosage: 1 TABLET (8.6 MG), TWICE A DAY, PER NEED
     Route: 048
  9. VITAMIN B12 [Concomitant]
     Active Substance: CYANOCOBALAMIN
     Dosage: 1000 MCG DAILY
  10. EMLA [Concomitant]
     Active Substance: LIDOCAINE\PRILOCAINE
     Dosage: 1 APPLICATION DAILY
  11. COMPAZINE [Concomitant]
     Active Substance: PROCHLORPERAZINE MALEATE
     Dosage: 1 TABLET (10 MG), EVERY 6 HOURS, PER NEED
     Route: 048
  12. OLANZAPINE [Concomitant]
     Active Substance: OLANZAPINE
     Dosage: 1 TABLET (5 MG), AS DIRECTED
     Route: 048
  13. LASIX [Concomitant]
     Active Substance: FUROSEMIDE
     Dosage: 1 TABLET (20 MG), DAILY
     Route: 048
  14. MAGNESIUM [Concomitant]
     Active Substance: MAGNESIUM
     Dosage: 1 TABLET (200 MG), DAILY
     Route: 048
  15. ZOFRAN [Concomitant]
     Active Substance: ONDANSETRON HYDROCHLORIDE
     Dosage: 1 TALET (4 MG), EVERY 6 HOURS, PER NEED
     Route: 048
  16. KETOROLAC [Concomitant]
     Active Substance: KETOROLAC TROMETHAMINE
     Dosage: 15 MILLIGRAM, DAILY
  17. GABAPENTIN [Concomitant]
     Active Substance: GABAPENTIN
     Dosage: 1 CAPSULE (100 MG), TWICE A DAY
     Route: 048
  18. KETOROLAC [Concomitant]
     Active Substance: KETOROLAC TROMETHAMINE
     Dosage: 1 TABLET (10 MG)
  19. PRILOSEC [Concomitant]
     Active Substance: OMEPRAZOLE MAGNESIUM
     Dosage: 1 CAPSULE (40 MG), TWICE A DAY
     Route: 048
  20. OXYCODONE [Concomitant]
     Active Substance: OXYCODONE
     Dosage: 1 TABLET (5 MG), EVERY 6 HOURS
     Route: 048
  21. TRAMADOL [Concomitant]
     Active Substance: TRAMADOL
     Dosage: 1 TABLET (50 MG), THREE TIMES A DAY
  22. CYCLOBENZAPRINE [Concomitant]
     Active Substance: CYCLOBENZAPRINE
     Dosage: 1 TABLET (10 MG), EVERY DAY BEFORE SLEEP
     Route: 048
  23. LIDOCAINE [Concomitant]
     Active Substance: LIDOCAINE
     Dosage: 1 PATCH (1.8 %) DAILY

REACTIONS (13)
  - Oesophageal stenosis [Recovered/Resolved]
  - Malignant neoplasm progression [Unknown]
  - Malignant neoplasm progression [Not Recovered/Not Resolved]
  - Bronchial secretion retention [Unknown]
  - Secretion discharge [Recovered/Resolved]
  - Gait disturbance [Not Recovered/Not Resolved]
  - Feeling abnormal [Not Recovered/Not Resolved]
  - Eating disorder [Recovered/Resolved]
  - Sciatica [Recovered/Resolved]
  - Weight decreased [Unknown]
  - Dyspnoea [Not Recovered/Not Resolved]
  - Irritability [Unknown]
  - Decreased activity [Not Recovered/Not Resolved]

NARRATIVE: CASE EVENT DATE: 20210101
